FAERS Safety Report 9791843 (Version 1)
Quarter: 2014Q1

REPORT INFORMATION
  Report Type: Spontaneous
  Country: GB (occurrence: GB)
  Receive Date: 20140102
  Receipt Date: 20140102
  Transmission Date: 20141002
  Serious: Yes (Death, Life-Threatening, Hospitalization)
  Sender: FDA-Public Use
  Company Number: US-ASTRAZENECA-2014SE00043

PATIENT
  Age: 68 Year
  Sex: Male

DRUGS (11)
  1. LISINOPRIL [Suspect]
     Route: 048
  2. EXENATIDE [Suspect]
     Indication: TYPE 2 DIABETES MELLITUS
     Route: 058
     Dates: start: 201210
  3. SIMVASTATIN [Suspect]
     Route: 065
  4. GTN [Concomitant]
  5. CARDURA XL [Concomitant]
  6. METFORMIN [Concomitant]
  7. ASPIRIN [Concomitant]
  8. OMEPRAZOLE [Concomitant]
  9. ATENOLOL [Concomitant]
  10. TIMOLOL [Concomitant]
  11. LATANOPROST [Concomitant]

REACTIONS (2)
  - Respiratory failure [Fatal]
  - Pancreatitis [Not Recovered/Not Resolved]
